FAERS Safety Report 8376208-X (Version None)
Quarter: 2012Q2

REPORT INFORMATION
  Report Type: 
  Country: None (occurrence: None)
  Receive Date: 20120522
  Receipt Date: 20120514
  Transmission Date: 20120825
  Serious: Yes (Hospitalization)
  Sender: FDA-Public Use
  Company Number: US-SANOFI-AVENTIS-2012SA033960

PATIENT
  Age: 75 Year
  Sex: Female
  Weight: 91 kg

DRUGS (4)
  1. PLAVIX [Suspect]
     Route: 048
     Dates: start: 20110201, end: 20120501
  2. ASPIRIN [Concomitant]
  3. PROTONIX [Concomitant]
  4. NOVOLOG [Concomitant]
     Dosage: DOSE:20 UNIT(S)

REACTIONS (2)
  - GASTROOESOPHAGEAL REFLUX DISEASE [None]
  - ABDOMINAL DISCOMFORT [None]
